FAERS Safety Report 5948385-9 (Version None)
Quarter: 2008Q4

REPORT INFORMATION
  Report Type: 
  Country: None (occurrence: None)
  Receive Date: 20081110
  Receipt Date: 20081110
  Transmission Date: 20090506
  Serious: No
  Sender: FDA-Public Use
  Company Number: None

PATIENT
  Age: 50 Year
  Sex: Male
  Weight: 123.3784 kg

DRUGS (2)
  1. MORPHINE SULFATE [Suspect]
     Indication: OSTEOARTHRITIS
     Dosage: 4X DAILY 4X DAILT PO
     Route: 048
     Dates: start: 20070907, end: 20071001
  2. MORPHINE SULFATE [Suspect]
     Indication: OSTEOARTHRITIS
     Dosage: 4X DAILY 4X DAILT PO
     Route: 048
     Dates: start: 20081107, end: 20081107

REACTIONS (5)
  - ABDOMINAL DISCOMFORT [None]
  - ABDOMINAL PAIN [None]
  - FATIGUE [None]
  - LIMB DISCOMFORT [None]
  - PAIN IN EXTREMITY [None]
